FAERS Safety Report 25385161 (Version 2)
Quarter: 2025Q2

REPORT INFORMATION
  Report Type: Spontaneous
  Country: GR (occurrence: GR)
  Receive Date: 20250602
  Receipt Date: 20250609
  Transmission Date: 20250716
  Serious: Yes (Other)
  Sender: MEITHEAL PHARMACEUTICALS
  Company Number: GR-MEITHEAL-2025MPLIT00213

PATIENT
  Age: 44 Year
  Sex: Female

DRUGS (2)
  1. TIGECYCLINE [Suspect]
     Active Substance: TIGECYCLINE
     Indication: Enterococcal infection
     Dosage: IV INFUSION EVERY 12H
     Route: 042
  2. TEICOPLANIN [Concomitant]
     Active Substance: TEICOPLANIN
     Indication: Enterococcal infection
     Route: 042

REACTIONS (1)
  - Acute febrile neutrophilic dermatosis [Recovering/Resolving]
